FAERS Safety Report 8423030-1 (Version None)
Quarter: 2012Q2

REPORT INFORMATION
  Report Type: 
  Country: None (occurrence: None)
  Receive Date: 20120608
  Receipt Date: 20120604
  Transmission Date: 20120825
  Serious: Yes (Other)
  Sender: FDA-Public Use
  Company Number: PHHY2012US047706

PATIENT
  Age: 30 Year
  Sex: Female

DRUGS (4)
  1. ANAESTHETICS [Concomitant]
  2. PREDNISONE [Concomitant]
     Dosage: UNK UKN, UNK
  3. CYCLOSPORINE [Suspect]
     Indication: STEM CELL TRANSPLANT
     Dosage: UNK UKN, UNK
  4. AZATHIOPRINE [Concomitant]
     Dosage: 100 MG, UNK
     Route: 048

REACTIONS (2)
  - PULMONARY EMBOLISM [None]
  - MYOCARDIAL INFARCTION [None]
